FAERS Safety Report 5227220-0 (Version None)
Quarter: 2007Q1

REPORT INFORMATION
  Report Type: 
  Country: None (occurrence: None)
  Receive Date: 20070202
  Receipt Date: 20070124
  Transmission Date: 20070707
  Serious: Yes (Hospitalization)
  Sender: FDA-Public Use
  Company Number: FR-GLAXOSMITHKLINE-B0455998A

PATIENT
  Age: 78 Year
  Sex: Female
  Weight: 70 kg

DRUGS (2)
  1. ARIXTRA [Suspect]
     Dosage: 7.5MG PER DAY
     Route: 058
     Dates: start: 20061227, end: 20070101
  2. HEPARIN [Suspect]
     Route: 042
     Dates: start: 20070103, end: 20070104

REACTIONS (5)
  - NEUROLOGICAL SYMPTOM [None]
  - OVERDOSE [None]
  - PAIN IN EXTREMITY [None]
  - RETROPERITONEAL HAEMATOMA [None]
  - SCIATICA [None]
